FAERS Safety Report 21246032 (Version 1)
Quarter: 2022Q3

REPORT INFORMATION
  Report Type: Spontaneous
  Country: US (occurrence: US)
  Receive Date: 20220824
  Receipt Date: 20220824
  Transmission Date: 20221027
  Serious: No
  Sender: FDA-Public Use
  Company Number: US-BAUSCH-BL-2022-020331

PATIENT
  Age: 66 Year
  Sex: Female

DRUGS (1)
  1. ATRALIN [Suspect]
     Active Substance: TRETINOIN
     Indication: Acne
     Route: 061
     Dates: end: 20220812

REACTIONS (4)
  - Skin disorder [Unknown]
  - Skin wrinkling [Not Recovered/Not Resolved]
  - Dry skin [Not Recovered/Not Resolved]
  - Product formulation issue [Unknown]
